FAERS Safety Report 17717234 (Version 1)
Quarter: 2020Q2

REPORT INFORMATION
  Report Type: Spontaneous
  Country: DE (occurrence: DE)
  Receive Date: 20200428
  Receipt Date: 20200428
  Transmission Date: 20200714
  Serious: Yes (Hospitalization)
  Sender: FDA-Public Use
  Company Number: DE-PFIZER INC-2020162866

PATIENT
  Age: 74 Year
  Sex: Female
  Weight: 80 kg

DRUGS (8)
  1. BISOPROLOL/HYDROCHLOROTHIAZID [Concomitant]
     Active Substance: BISOPROLOL FUMARATE\HYDROCHLOROTHIAZIDE
     Dosage: 5|12.5 MG, 1-0-0-0
  2. VIGANTOL [COLECALCIFEROL] [Concomitant]
     Active Substance: CHOLECALCIFEROL
     Dosage: 1000 IU (MOST RECENTLY 25JAN2020)
  3. ALLOPURINOL. [Concomitant]
     Active Substance: ALLOPURINOL
     Dosage: 100 MG (1-0-0-0)
  4. CLEXANE [Concomitant]
     Active Substance: ENOXAPARIN SODIUM
     Dosage: 40 MG (0-0-1-0)
  5. METHOTREXATE SODIUM. [Suspect]
     Active Substance: METHOTREXATE SODIUM
     Dosage: 2.5 MG (MOST RECENTLY 25JAN2020)
  6. AMLODIPINE AND VALSARTAN [Concomitant]
     Active Substance: AMLODIPINE\VALSARTAN
     Dosage: 100|160 MG, 0.5-0-0-0
  7. PREDNISOLON [PREDNISOLONE] [Suspect]
     Active Substance: PREDNISOLONE
     Dosage: 2.5 MG (1-0-0-0)
  8. ACETYLSALICYLSAEURE [Concomitant]
     Active Substance: ASPIRIN
     Dosage: 100 MG (1-0-0-0)

REACTIONS (1)
  - Wound [Unknown]

NARRATIVE: CASE EVENT DATE: 20200127
